FAERS Safety Report 20152745 (Version 1)
Quarter: 2021Q4

REPORT INFORMATION
  Report Type: Spontaneous
  Country: US (occurrence: US)
  Receive Date: 20211206
  Receipt Date: 20211206
  Transmission Date: 20220304
  Serious: No
  Sender: FDA-Public Use
  Company Number: US-MYLANLABS-2021M1084460

PATIENT
  Age: 63 Year
  Sex: Male
  Weight: 94 kg

DRUGS (3)
  1. POTASSIUM [Suspect]
     Active Substance: POTASSIUM
     Indication: Product used for unknown indication
     Dosage: UNK
  2. MAGNESIUM [Suspect]
     Active Substance: MAGNESIUM
     Indication: Product used for unknown indication
     Dosage: UNK
     Route: 065
  3. ENTRESTO [Suspect]
     Active Substance: SACUBITRIL\VALSARTAN
     Indication: Product used for unknown indication
     Dosage: 24.26 MILLIGRAM, BID

REACTIONS (2)
  - Dizziness [Unknown]
  - Weight increased [Unknown]

NARRATIVE: CASE EVENT DATE: 20211001
